FAERS Safety Report 7394994-2 (Version None)
Quarter: 2011Q1

REPORT INFORMATION
  Report Type: 
  Country: None (occurrence: None)
  Receive Date: 20110325
  Receipt Date: 20110309
  Transmission Date: 20110831
  Serious: Yes (Other)
  Sender: FDA-Public Use
  Company Number: DSA_45220_2011

PATIENT
  Age: 61 Year
  Sex: Female

DRUGS (8)
  1. SOTALOL [Concomitant]
  2. TILDIEM (TILDIEM LA - DILTIAZEM HYDROCHLORIDE) [Suspect]
     Indication: PRODUCT USED FOR UNKNOWN INDICATION
     Dosage: DF ORAL
     Route: 048
     Dates: start: 20101006, end: 20101104
  3. INDAPAMIDE [Concomitant]
  4. BISOPROLOL [Concomitant]
  5. MEBEVERINE [Concomitant]
  6. SIMVASTATIN [Concomitant]
  7. LOSARTAN [Concomitant]
  8. RAMIPRIL [Concomitant]

REACTIONS (8)
  - REACTION TO DRUG EXCIPIENTS [None]
  - DRUG INTOLERANCE [None]
  - VERTIGO [None]
  - NAUSEA [None]
  - VISUAL IMPAIRMENT [None]
  - BLOOD PRESSURE INCREASED [None]
  - ALTERED VISUAL DEPTH PERCEPTION [None]
  - HYPOAESTHESIA [None]
